FAERS Safety Report 7246013-6 (Version None)
Quarter: 2011Q1

REPORT INFORMATION
  Report Type: 
  Country: None (occurrence: None)
  Receive Date: 20110126
  Receipt Date: 20110113
  Transmission Date: 20110831
  Serious: Yes (Hospitalization)
  Sender: FDA-Public Use
  Company Number: US-ELI_LILLY_AND_COMPANY-US201101003466

PATIENT
  Sex: Male
  Weight: 120.18 kg

DRUGS (1)
  1. PRASUGREL HYDROCHLORIDE [Suspect]
     Dates: start: 20101209

REACTIONS (3)
  - CORONARY ARTERY DISEASE [None]
  - HYPERTENSION [None]
  - DIABETES MELLITUS [None]
